FAERS Safety Report 6231362-0 (Version None)
Quarter: 2009Q2

REPORT INFORMATION
  Report Type: 
  Country: None (occurrence: None)
  Receive Date: 20090616
  Receipt Date: 20090603
  Transmission Date: 20091009
  Serious: Yes (Other)
  Sender: FDA-Public Use
  Company Number: US-ELI_LILLY_AND_COMPANY-US200906001102

PATIENT
  Sex: Female

DRUGS (6)
  1. CYMBALTA [Suspect]
     Indication: ANXIETY
     Dosage: 60 MG, DAILY (1/D)
     Dates: start: 20081101
  2. ADDERALL 10 [Concomitant]
  3. OXYCONTIN [Concomitant]
  4. VITAMIN D [Concomitant]
  5. IRON [Concomitant]
  6. NAPROXEN [Concomitant]

REACTIONS (3)
  - HEPATIC ENZYME ABNORMAL [None]
  - HEPATITIS C [None]
  - PLATELET COUNT DECREASED [None]
